FAERS Safety Report 18237311 (Version 2)
Quarter: 2020Q4

REPORT INFORMATION
  Report Type: Spontaneous
  Country: US (occurrence: US)
  Receive Date: 20200907
  Receipt Date: 20201228
  Transmission Date: 20210113
  Serious: Yes (Hospitalization, Other)
  Sender: FDA-Public Use
  Company Number: US-BRISTOL-MYERS SQUIBB COMPANY-BMS-2020-069452

PATIENT
  Age: 79 Year
  Sex: Male
  Weight: 82.54 kg

DRUGS (3)
  1. FIRDAPSE [Suspect]
     Active Substance: AMIFAMPRIDINE PHOSPHATE
     Indication: MYASTHENIC SYNDROME
     Dosage: 20 MILLIGRAM, TID
     Route: 048
     Dates: start: 2019
  2. ALEVE [Suspect]
     Active Substance: NAPROXEN SODIUM
     Indication: BACK DISORDER
     Dosage: UNK
     Route: 065
     Dates: start: 2019
  3. WARFARIN SODIUM. [Suspect]
     Active Substance: WARFARIN SODIUM
     Indication: PRODUCT USED FOR UNKNOWN INDICATION
     Dosage: UNK
     Route: 065
     Dates: end: 20200728

REACTIONS (3)
  - Ulcer haemorrhage [Recovered/Resolved]
  - Back disorder [Unknown]
  - Vomiting [Recovered/Resolved]

NARRATIVE: CASE EVENT DATE: 2019
